FAERS Safety Report 22902374 (Version 2)
Quarter: 2023Q4

REPORT INFORMATION
  Report Type: Spontaneous
  Country: US (occurrence: US)
  Receive Date: 20230904
  Receipt Date: 20231004
  Transmission Date: 20240109
  Serious: No
  Sender: FDA-Public Use
  Company Number: US-AMGEN-USASP2023152713

PATIENT
  Age: 55 Year
  Sex: Female

DRUGS (34)
  1. OTEZLA [Suspect]
     Active Substance: APREMILAST
     Indication: Psoriasis
     Dosage: 30 MILLIGRAM, BID
     Route: 048
     Dates: start: 20221017, end: 20230915
  2. OTEZLA [Suspect]
     Active Substance: APREMILAST
     Indication: Psoriatic arthropathy
  3. REPATHA [Suspect]
     Active Substance: EVOLOCUMAB
     Indication: Product used for unknown indication
     Dosage: UNK
     Route: 065
  4. MELATONIN [Concomitant]
     Active Substance: MELATONIN
     Dosage: 3 MILLIGRAM
  5. ACETAMINOPHEN [Concomitant]
     Active Substance: ACETAMINOPHEN
     Dosage: 500 MILLIGRAM
  6. AIRBORNE CITRUS [Concomitant]
     Dosage: CHEWABLE 64S
  7. ELDERTONIC [Concomitant]
  8. EXCEDRIN MIGRAINE [Concomitant]
     Active Substance: ACETAMINOPHEN\ASPIRIN\CAFFEINE
  9. MUCINEX DM MAXIMUM STRENGTH [Concomitant]
     Active Substance: DEXTROMETHORPHAN HYDROBROMIDE\GUAIFENESIN
  10. ALBUTEROL [Concomitant]
     Active Substance: ALBUTEROL
  11. AZELASTINE [Concomitant]
     Active Substance: AZELASTINE
  12. BENZONATATE [Concomitant]
     Active Substance: BENZONATATE
  13. BREZTRI [Concomitant]
     Active Substance: BUDESONIDE\FORMOTEROL\GLYCOPYRROLATE
  14. Bupropion +pharma [Concomitant]
  15. CLOBETASOL [Concomitant]
     Active Substance: CLOBETASOL
  16. DEXILANT [Concomitant]
     Active Substance: DEXLANSOPRAZOLE
  17. DICLOFENAC AL [Concomitant]
  18. DICYCLOMINE [Concomitant]
     Active Substance: DICYCLOMINE HYDROCHLORIDE
  19. DILTIAZEM [Concomitant]
     Active Substance: DILTIAZEM
  20. FAMOTIDINE [Concomitant]
     Active Substance: FAMOTIDINE
  21. FLONASE [Concomitant]
     Active Substance: FLUTICASONE PROPIONATE
  22. FOLINIC PLUS [Concomitant]
  23. GABAPENTIN [Concomitant]
     Active Substance: GABAPENTIN
  24. ACETAMINOPHEN\HYDROCODONE [Concomitant]
     Active Substance: ACETAMINOPHEN\HYDROCODONE
  25. LINZESS [Concomitant]
     Active Substance: LINACLOTIDE
  26. LOSARTAN [Concomitant]
     Active Substance: LOSARTAN
  27. PROMETHAZINE [Concomitant]
     Active Substance: PROMETHAZINE HYDROCHLORIDE
  28. TIZANIDINE [Concomitant]
     Active Substance: TIZANIDINE
  29. TRINTELLIX [Concomitant]
     Active Substance: VORTIOXETINE HYDROBROMIDE
  30. VALACYCLOVIR [Concomitant]
     Active Substance: VALACYCLOVIR HYDROCHLORIDE
  31. VASCEPA [Concomitant]
     Active Substance: ICOSAPENT ETHYL
  32. KETOCONAZOLE [Concomitant]
     Active Substance: KETOCONAZOLE
     Dosage: UNK
  33. NITROGLYCERIN [Concomitant]
     Active Substance: NITROGLYCERIN
     Dosage: UNK
  34. FEXOFENADINE [Concomitant]
     Active Substance: FEXOFENADINE HYDROCHLORIDE
     Dosage: UNK

REACTIONS (1)
  - Psoriasis [Not Recovered/Not Resolved]

NARRATIVE: CASE EVENT DATE: 20221014
